FAERS Safety Report 6407741-5 (Version None)
Quarter: 2009Q4

REPORT INFORMATION
  Report Type: 
  Country: None (occurrence: None)
  Receive Date: 20091020
  Receipt Date: 20091005
  Transmission Date: 20100525
  Serious: Yes (Other)
  Sender: FDA-Public Use
  Company Number: GB-AVENTIS-200921486GDDC

PATIENT

DRUGS (2)
  1. GLIBENCLAMIDE [Suspect]
  2. METFORMIN [Suspect]

REACTIONS (1)
  - FRACTURE [None]
